FAERS Safety Report 25500844 (Version 2)
Quarter: 2025Q3

REPORT INFORMATION
  Report Type: Report from Study
  Country: US (occurrence: US)
  Receive Date: 20250701
  Receipt Date: 20250909
  Transmission Date: 20251020
  Serious: Yes (Other)
  Sender: INCYTE
  Company Number: US-EVENT-003249

PATIENT

DRUGS (1)
  1. RUXOLITINIB [Suspect]
     Active Substance: RUXOLITINIB
     Indication: Vitiligo
     Dosage: UNK, BID TO LEGS, BACK OF NECK AND WRISTS/WHITE PATCHES

REACTIONS (2)
  - Tendon rupture [Recovering/Resolving]
  - Urinary tract infection [Recovered/Resolved]
